FAERS Safety Report 17184269 (Version 1)
Quarter: 2019Q4

REPORT INFORMATION
  Report Type: Spontaneous
  Country: US (occurrence: US)
  Receive Date: 20191219
  Receipt Date: 20191219
  Transmission Date: 20200122
  Serious: Yes (Other)
  Sender: FDA-Public Use
  Company Number: None

PATIENT
  Age: 44 Year
  Sex: Female
  Weight: 81 kg

DRUGS (9)
  1. LAMICTAL [Concomitant]
     Active Substance: LAMOTRIGINE
  2. METHYLFOLATE [Concomitant]
     Active Substance: LEVOMEFOLATE CALCIUM
  3. ARMOUR THYROID [Concomitant]
     Active Substance: THYROID, PORCINE
  4. TYLENOL EXTRA STRENGTH [Concomitant]
     Active Substance: ACETAMINOPHEN
  5. SPRAVATO [Suspect]
     Active Substance: ESKETAMINE
     Indication: DEPRESSION
     Dosage: ?          QUANTITY:2 SPRAY(S);OTHER FREQUENCY:TWICE A WEEK;?
     Route: 055
     Dates: start: 20191216, end: 20191216
  6. LITHIUM. [Concomitant]
     Active Substance: LITHIUM
  7. ADDERALL [Concomitant]
     Active Substance: AMPHETAMINE ASPARTATE\AMPHETAMINE SULFATE\DEXTROAMPHETAMINE SACCHARATE\DEXTROAMPHETAMINE SULFATE
  8. KLONOPIN [Concomitant]
     Active Substance: CLONAZEPAM
  9. SPRAVATO [Suspect]
     Active Substance: ESKETAMINE
     Indication: POST-TRAUMATIC STRESS DISORDER
     Dosage: ?          QUANTITY:2 SPRAY(S);OTHER FREQUENCY:TWICE A WEEK;?
     Route: 055
     Dates: start: 20191216, end: 20191216

REACTIONS (4)
  - Hallucination [None]
  - Migraine [None]
  - Headache [None]
  - Dissociation [None]

NARRATIVE: CASE EVENT DATE: 20191216
